FAERS Safety Report 8978136 (Version 3)
Quarter: 2013Q2

REPORT INFORMATION
  Report Type: Spontaneous
  Country: JP (occurrence: JP)
  Receive Date: 20121220
  Receipt Date: 20130507
  Transmission Date: 20140414
  Serious: Yes (Hospitalization)
  Sender: FDA-Public Use
  Company Number: PHHY2012JP116072

PATIENT
  Age: 33 Year
  Sex: Male

DRUGS (8)
  1. VALPROIC ACID [Suspect]
     Indication: BIPOLAR DISORDER
     Dosage: 1200 MG, DAILY
  2. TOFRANIL [Suspect]
     Indication: MAJOR DEPRESSION
     Dosage: 75 MG, DAILY
     Route: 048
     Dates: start: 20120302, end: 20120315
  3. TOFRANIL [Suspect]
     Dosage: 125 MG, DAILY
     Route: 048
     Dates: start: 20120316, end: 20120329
  4. TOFRANIL [Suspect]
     Dosage: 200 MG, DAILY
     Route: 048
     Dates: start: 20120330, end: 20120426
  5. TOFRANIL [Suspect]
     Dosage: 250 MG, DAILY
     Route: 048
     Dates: start: 20120427, end: 20120510
  6. OLANZAPINE [Suspect]
     Indication: BIPOLAR DISORDER
     Dosage: 20 MG, DAILY
  7. LITHIUM CARBONATE [Concomitant]
     Dosage: 1000 MG
  8. LAMOTRIGINE [Concomitant]
     Dosage: 100 MG

REACTIONS (7)
  - Mania [Recovered/Resolved]
  - Insomnia [Recovering/Resolving]
  - Back pain [Recovering/Resolving]
  - Spinal osteoarthritis [Recovering/Resolving]
  - Type 2 diabetes mellitus [Unknown]
  - Weight increased [Unknown]
  - Depression [Recovered/Resolved]
